FAERS Safety Report 9645668 (Version 1)
Quarter: 2013Q4

REPORT INFORMATION
  Report Type: Report from Study
  Country: MX (occurrence: MX)
  Receive Date: 20131025
  Receipt Date: 20131025
  Transmission Date: 20140711
  Serious: Yes (Hospitalization, Other)
  Sender: FDA-Public Use
  Company Number: PHHY2013MX120766

PATIENT
  Age: 77 Year
  Sex: Male

DRUGS (3)
  1. EXFORGE [Suspect]
     Indication: HYPERTENSION
     Dosage: 160/5 MG UNK
  2. EXFORGE [Suspect]
     Dosage: 0.5 DF (160/10 MG), UKN
     Route: 048
     Dates: start: 201303
  3. EXFORGE [Suspect]
     Dosage: 0.5 DF (160/10 MG), UKN
     Route: 048
     Dates: start: 201308

REACTIONS (6)
  - Bladder cancer stage III [Recovered/Resolved]
  - Diabetes mellitus [Not Recovered/Not Resolved]
  - Blood cholesterol abnormal [Not Recovered/Not Resolved]
  - Abdominal discomfort [Not Recovered/Not Resolved]
  - Asthenia [Not Recovered/Not Resolved]
  - Wrong technique in drug usage process [Not Recovered/Not Resolved]
